FAERS Safety Report 19612922 (Version 1)
Quarter: 2021Q3

REPORT INFORMATION
  Report Type: Spontaneous
  Country: FR (occurrence: FR)
  Receive Date: 20210727
  Receipt Date: 20210727
  Transmission Date: 20211014
  Serious: Yes (Hospitalization)
  Sender: FDA-Public Use
  Company Number: FR-TEVA-2021-FR-1935326

PATIENT
  Age: 31 Year
  Sex: Female

DRUGS (3)
  1. SUMATRIPTAN. [Suspect]
     Active Substance: SUMATRIPTAN
     Indication: HEADACHE
     Dosage: UNKNOWN
     Route: 048
     Dates: start: 20210628, end: 20210629
  2. COMIRNATY [Suspect]
     Active Substance: TOZINAMERAN
     Indication: COVID-19 IMMUNISATION
     Dosage: 1 DOSAGE FORMS
     Route: 030
     Dates: start: 20210520, end: 20210520
  3. LEELOO 0,1 MG/0,02 MG, COMPRIME ENROBE [Suspect]
     Active Substance: ETHINYL ESTRADIOL\LEVONORGESTREL
     Indication: CONTRACEPTION
     Dosage: UNIT DOSE :1 DOSAGE FORMS ,THERAPY START DATE :ASKU
     Route: 048
     Dates: end: 20210629

REACTIONS (1)
  - Cerebral venous thrombosis [Recovering/Resolving]

NARRATIVE: CASE EVENT DATE: 20210629
